FAERS Safety Report 12109220 (Version 1)
Quarter: 2016Q1

REPORT INFORMATION
  Report Type: Spontaneous
  Country: US (occurrence: None)
  Receive Date: 20160222
  Receipt Date: 20160222
  Transmission Date: 20160526
  Serious: Yes (Hospitalization)
  Sender: FDA-Public Use
  Company Number: None

PATIENT
  Age: 60 Year
  Sex: Male

DRUGS (2)
  1. METOPROLOL. [Suspect]
     Active Substance: METOPROLOL
     Indication: ATRIAL FIBRILLATION
     Route: 042
     Dates: start: 20160120, end: 20160120
  2. DILTIAZEM [Suspect]
     Active Substance: DILTIAZEM
     Route: 042

REACTIONS (4)
  - Dyspnoea [None]
  - Resuscitation [None]
  - Bundle branch block [None]
  - Hypotension [None]

NARRATIVE: CASE EVENT DATE: 20160120
